FAERS Safety Report 15903680 (Version 3)
Quarter: 2023Q1

REPORT INFORMATION
  Report Type: Spontaneous
  Country: CZ (occurrence: CZ)
  Receive Date: 20190203
  Receipt Date: 20230331
  Transmission Date: 20230417
  Serious: Yes (Death, Other)
  Sender: FDA-Public Use
  Company Number: CZ-009507513-1901CZE011910

PATIENT
  Age: 18 Year
  Sex: Female
  Weight: 32 kg

DRUGS (3)
  1. ZERBAXA [Suspect]
     Active Substance: CEFTOLOZANE SULFATE\TAZOBACTAM SODIUM
     Indication: Cystic fibrosis
     Dosage: 1.5 GRAM, Q8H
     Dates: start: 20180511
  2. AMIKACIN [Suspect]
     Active Substance: AMIKACIN
     Indication: Pseudomonas infection
     Dosage: 1.25 GRAM
  3. COLISTIN [Suspect]
     Active Substance: COLISTIN
     Indication: Pseudomonas infection
     Dosage: UNK
     Route: 042

REACTIONS (7)
  - Cystic fibrosis [Fatal]
  - Right ventricular failure [Unknown]
  - Anuria [Unknown]
  - Ascites [Unknown]
  - Pseudomonas infection [Unknown]
  - Liver disorder [Unknown]
  - Product use in unapproved indication [Unknown]

NARRATIVE: CASE EVENT DATE: 20180501
